FAERS Safety Report 6123964-7 (Version None)
Quarter: 2009Q1

REPORT INFORMATION
  Report Type: 
  Country: None (occurrence: None)
  Receive Date: 20090318
  Receipt Date: 20090318
  Transmission Date: 20090719
  Serious: Yes (Hospitalization)
  Sender: FDA-Public Use
  Company Number: None

PATIENT
  Age: 44 Day
  Sex: Female
  Weight: 83.9154 kg

DRUGS (1)
  1. SUBOXONE [Suspect]
     Indication: DRUG DEPENDENCE
     Dosage: 8MG 3 A DAY SL
     Route: 060

REACTIONS (4)
  - APPARENT DEATH [None]
  - HEART RATE INCREASED [None]
  - RASH [None]
  - SUICIDAL IDEATION [None]
